FAERS Safety Report 21313071 (Version 3)
Quarter: 2022Q3

REPORT INFORMATION
  Report Type: Spontaneous
  Country: US (occurrence: US)
  Receive Date: 20220909
  Receipt Date: 20220921
  Transmission Date: 20221027
  Serious: Yes (Other)
  Sender: FDA-Public Use
  Company Number: US-009507513-2209USA003049

PATIENT
  Sex: Male
  Weight: 99.8 kg

DRUGS (16)
  1. KEYTRUDA [Suspect]
     Active Substance: PEMBROLIZUMAB
     Indication: Lung squamous cell carcinoma metastatic
     Dosage: UNK
     Route: 042
     Dates: start: 20200219, end: 20200701
  2. KEYTRUDA [Suspect]
     Active Substance: PEMBROLIZUMAB
     Dosage: UNK
     Dates: start: 20200805, end: 20201111
  3. KEYTRUDA [Suspect]
     Active Substance: PEMBROLIZUMAB
     Dosage: UNK
     Dates: start: 20201229, end: 20210321
  4. CARBOPLATIN [Suspect]
     Active Substance: CARBOPLATIN
     Indication: Lung squamous cell carcinoma metastatic
     Dosage: UNK
     Dates: start: 20200219, end: 20200701
  5. CARBOPLATIN [Suspect]
     Active Substance: CARBOPLATIN
     Dosage: UNK
     Dates: start: 20201229, end: 20210321
  6. TAXOL [Suspect]
     Active Substance: PACLITAXEL
     Indication: Lung squamous cell carcinoma metastatic
     Dosage: UNK
     Dates: start: 20200219, end: 20200701
  7. TAXOL [Suspect]
     Active Substance: PACLITAXEL
     Dosage: UNK
     Dates: start: 20201229, end: 20210321
  8. VITAMIN B12 [Concomitant]
     Active Substance: CYANOCOBALAMIN
     Dosage: 1000 MICROGRAM (1 TABLET), EVERY 0.5 DAY, VIA G-TUBE
  9. FOLVITE [FOLIC ACID] [Concomitant]
     Dosage: 1 MILLIGRAM (1 TABLET), EVERY 0.5 DAY, VIA THE G-TUBE
  10. DILAUDID [Concomitant]
     Active Substance: HYDROMORPHONE HYDROCHLORIDE
     Dosage: 2 TABLETS VIA G-TUBE FOUR HOURS AS NEEDED
  11. SYNTHROID [Concomitant]
     Active Substance: LEVOTHYROXINE SODIUM
     Dosage: 137 MICROGRAM, QD
     Route: 048
  12. OSMOLITE [Concomitant]
     Indication: Nutritional supplementation
     Dosage: 474 TO 711 ML VIA G-TUBE FOUR TIMES PER DAY, VIA G-TUBE
  13. CREON [Concomitant]
     Active Substance: PANCRELIPASE AMYLASE\PANCRELIPASE LIPASE\PANCRELIPASE PROTEASE
     Dosage: 2 CAPSULES (24000UNITS), EVERY 8 HOURS (STRENGTH: 60000, 12000, 38000 USP^U/1) VIA FEEDING TUBE
  14. SENOKOT-S [Concomitant]
     Active Substance: DOCUSATE SODIUM\SENNOSIDES
     Indication: Constipation
     Dosage: 2 TABLETS VIA G-TUBE TWICE DAILY AS NEEDED
  15. SODIUM BICARBONATE [Concomitant]
     Active Substance: SODIUM BICARBONATE
     Indication: Complication associated with device
     Dosage: 20 MILLILITER, BY FEEDING TUBE AS NEEDED TOR TUBE OCCLUSION
  16. BETAPACE [Concomitant]
     Active Substance: SOTALOL HYDROCHLORIDE
     Dosage: 80 MILLIGRAM (1 TABLET), EVERY 0.5 DAY, VIA G-TUBE

REACTIONS (1)
  - Pancytopenia [Unknown]
